FAERS Safety Report 8037427-5 (Version None)
Quarter: 2012Q1

REPORT INFORMATION
  Report Type: 
  Country: None (occurrence: None)
  Receive Date: 20120106
  Receipt Date: 20111223
  Transmission Date: 20120608
  Serious: Yes (Life-Threatening, Hospitalization, Disabling)
  Sender: FDA-Public Use
  Company Number: TPG2011A02984

PATIENT
  Sex: Male

DRUGS (5)
  1. PIOGLITAZONE HYDROCHLORIDE/METFORMIN HYDROCHLORIDE [Suspect]
     Indication: TYPE 2 DIABETES MELLITUS
     Dosage: PIOGLITAZONE/METFORMIN 15/850 MG ORAL
     Route: 048
     Dates: start: 20100301, end: 20110301
  2. CARVEDILOL [Concomitant]
  3. BLOPRESS (CANDESARTAN CILEXETIL) [Concomitant]
  4. AMLODIPINE [Concomitant]
  5. NEPRESOL (DIHYDRALAZINE SULFATE) [Concomitant]

REACTIONS (2)
  - BLADDER TRANSITIONAL CELL CARCINOMA [None]
  - PROSTATE CANCER [None]
